FAERS Safety Report 5819287-3 (Version None)
Quarter: 2008Q3

REPORT INFORMATION
  Report Type: 
  Country: None (occurrence: None)
  Receive Date: 20080718
  Receipt Date: 20080703
  Transmission Date: 20090109
  Serious: Yes (Death)
  Sender: FDA-Public Use
  Company Number: TNZFR200800117

PATIENT
  Age: 88 Year
  Sex: Male
  Weight: 65 kg

DRUGS (8)
  1. INNOHEP [Suspect]
     Indication: THROMBOSIS PROPHYLAXIS
     Dosage: 4500 IU, SUBCUTANEOUS
     Route: 058
     Dates: start: 20080627, end: 20080701
  2. INNOHEP [Suspect]
  3. INNOHEP [Suspect]
  4. INNOHEP [Suspect]
  5. EBIXA (MEMANTINE HYDROCHLORIDE) [Concomitant]
  6. EFFEXOR [Concomitant]
  7. INIPOMP (PANTOPRAZOLE) [Concomitant]
  8. ZOLPIDEM TARTRATE [Concomitant]

REACTIONS (4)
  - ACUTE PULMONARY OEDEMA [None]
  - CARDIO-RESPIRATORY DISTRESS [None]
  - CARDIOPULMONARY FAILURE [None]
  - LUNG DISORDER [None]
